FAERS Safety Report 5188853-3 (Version None)
Quarter: 2006Q4

REPORT INFORMATION
  Report Type: 
  Country: None (occurrence: None)
  Receive Date: 20061221
  Receipt Date: 20061213
  Transmission Date: 20070319
  Serious: Yes (Hospitalization)
  Sender: FDA-Public Use
  Company Number: US-ROXANE LABORATORIES, INC-2006-BP-14639RO

PATIENT
  Age: 94 Year
  Sex: Female
  Weight: 40 kg

DRUGS (1)
  1. LIDOCAINE [Suspect]
     Indication: NERVE BLOCK
     Dosage: 200 MG X 1 DOSE INTO HEMATOMA
     Route: 042

REACTIONS (3)
  - GRAND MAL CONVULSION [None]
  - INCORRECT ROUTE OF DRUG ADMINISTRATION [None]
  - MENTAL STATUS CHANGES [None]
